FAERS Safety Report 8794011 (Version 4)
Quarter: 2012Q4

REPORT INFORMATION
  Report Type: 
  Country: JP (occurrence: JP)
  Receive Date: 20120917
  Receipt Date: 20121101
  Transmission Date: 20130627
  Serious: Yes (Other)
  Sender: FDA-Public Use
  Company Number: JP-PFIZER INC-2012226919

PATIENT
  Age: 62 Year
  Sex: Male
  Weight: 63.4 kg

DRUGS (7)
  1. LIPITOR [Suspect]
     Indication: CAROTID ARTERY STENOSIS
     Dosage: 10 mg, 1x/day
     Route: 048
     Dates: start: 20111018, end: 20120904
  2. LENDORMIN [Suspect]
     Indication: INSOMNIA
     Dosage: 0.25 mg, 1x/day
     Route: 048
     Dates: start: 20120818, end: 20120902
  3. BAYASPIRIN [Concomitant]
     Indication: CAROTID ARTERY STENOSIS
     Dosage: 100 mg, daily
     Dates: start: 20111007, end: 20121002
  4. TAKEPRON [Concomitant]
     Indication: PROPHYLAXIS
     Dosage: 15 mg, daily
     Dates: start: 20111007, end: 20121002
  5. PLETAAL [Concomitant]
     Indication: CAROTID ARTERY STENOSIS
     Dosage: 100 mg, 2x/day
     Dates: start: 20111201
  6. ALLEGRA [Concomitant]
     Indication: SKIN ERUPTION
     Dosage: 60 mg, 2x/day
     Dates: start: 20120515, end: 20120813
  7. ETICALM [Concomitant]
     Indication: INSOMNIA
     Dosage: 0.5 mg, daily
     Dates: start: 20120612, end: 20121002

REACTIONS (7)
  - Off label use [Unknown]
  - Mental impairment [Not Recovered/Not Resolved]
  - Rash [Recovering/Resolving]
  - Insomnia [Unknown]
  - Depression [Unknown]
  - Psychosomatic disease [Unknown]
  - Dysuria [Unknown]
